FAERS Safety Report 8800998 (Version 1)
Quarter: 2012Q4

REPORT INFORMATION
  Report Type: 
  Country: US (occurrence: US)
  Receive Date: 20120921
  Receipt Date: 20120921
  Transmission Date: 20130627
  Serious: Yes (Other)
  Sender: FDA-Public Use
  Company Number: US-GLAXOSMITHKLINE-A0930512A

PATIENT
  Age: 50 Year
  Sex: Male
  Weight: 113.6 kg

DRUGS (1)
  1. AVANDIA [Suspect]
     Indication: DIABETES MELLITUS
     Dosage: 4MG Twice per day
     Route: 048
     Dates: end: 2008

REACTIONS (4)
  - Cardiac failure congestive [Not Recovered/Not Resolved]
  - Chronic obstructive pulmonary disease [Unknown]
  - Cardiac hypertrophy [Unknown]
  - Hypertension [Unknown]
